FAERS Safety Report 12628706 (Version 1)
Quarter: 2016Q3

REPORT INFORMATION
  Report Type: Spontaneous
  Country: US (occurrence: US)
  Receive Date: 20160808
  Receipt Date: 20160808
  Transmission Date: 20161109
  Serious: No
  Sender: FDA-Public Use
  Company Number: US-JAZZ-2016-US-004548

PATIENT
  Sex: Male

DRUGS (19)
  1. FOLIC ACID. [Concomitant]
     Active Substance: FOLIC ACID
  2. LOVASTATIN. [Concomitant]
     Active Substance: LOVASTATIN
  3. ALLEGRA ALLERGY [Concomitant]
     Active Substance: FEXOFENADINE HYDROCHLORIDE
  4. XYREM [Suspect]
     Active Substance: SODIUM OXYBATE
     Dosage: DOSE ADJUSTMENTS
     Route: 048
  5. OXYCODONE [Concomitant]
     Active Substance: OXYCODONE
  6. VITAMIN D [Concomitant]
     Active Substance: CHOLECALCIFEROL
  7. ASMANEX [Concomitant]
     Active Substance: MOMETASONE FUROATE
  8. ASPIRIN. [Concomitant]
     Active Substance: ASPIRIN
  9. FINASTERIDE. [Concomitant]
     Active Substance: FINASTERIDE
  10. XYREM [Suspect]
     Active Substance: SODIUM OXYBATE
     Indication: NARCOLEPSY
     Dosage: 2.25 G, BID
     Route: 048
     Dates: start: 201510, end: 201510
  11. XYREM [Suspect]
     Active Substance: SODIUM OXYBATE
     Dosage: 4.5 G, BID
     Route: 048
     Dates: start: 201511
  12. BACLOFEN. [Concomitant]
     Active Substance: BACLOFEN
  13. LUNESTA [Concomitant]
     Active Substance: ESZOPICLONE
  14. PROVIGIL [Concomitant]
     Active Substance: MODAFINIL
  15. NASONEX [Concomitant]
     Active Substance: MOMETASONE FUROATE
  16. MULTIVITAMINS [Concomitant]
     Active Substance: VITAMINS
  17. MORPHINE [Concomitant]
     Active Substance: MORPHINE
  18. MIRTAZAPINE. [Concomitant]
     Active Substance: MIRTAZAPINE
  19. PROAIR HFA [Concomitant]
     Active Substance: ALBUTEROL SULFATE

REACTIONS (1)
  - Weight decreased [Not Recovered/Not Resolved]
